FAERS Safety Report 18566737 (Version 1)
Quarter: 2020Q4

REPORT INFORMATION
  Report Type: Spontaneous
  Country: JP (occurrence: JP)
  Receive Date: 20201201
  Receipt Date: 20201201
  Transmission Date: 20210114
  Serious: Yes (Other)
  Sender: FDA-Public Use
  Company Number: JP-PFIZER INC-2020466577

PATIENT

DRUGS (1)
  1. WYPAX 1.0 [Suspect]
     Active Substance: LORAZEPAM
     Dosage: UNK
     Route: 048

REACTIONS (4)
  - Gastrooesophageal reflux disease [Unknown]
  - Pharyngeal inflammation [Unknown]
  - Foreign body in throat [Unknown]
  - Dysphagia [Unknown]
